FAERS Safety Report 7752482-5 (Version None)
Quarter: 2011Q3

REPORT INFORMATION
  Report Type: 
  Country: None (occurrence: None)
  Receive Date: 20110915
  Receipt Date: 20110912
  Transmission Date: 20111222
  Serious: Yes (Death, Hospitalization)
  Sender: FDA-Public Use
  Company Number: NL-BAYER-200932010GPV

PATIENT
  Age: 61 Year
  Sex: Male
  Weight: 124 kg

DRUGS (11)
  1. TIOTROPIUM [Concomitant]
     Indication: DYSPNOEA
     Dosage: 2.5 ?G (DAILY DOSE), , ORAL
     Route: 048
     Dates: start: 20080101
  2. DOMPERIDON [Concomitant]
     Indication: NAUSEA
  3. PREDNISOLONE [Concomitant]
     Indication: CHRONIC OBSTRUCTIVE PULMONARY DISEASE
     Dosage: 20 MG (DAILY DOSE), , ORAL
     Route: 048
     Dates: start: 20090825, end: 20090904
  4. AZITHROMYCIN [Concomitant]
     Indication: INFECTION PROPHYLAXIS
     Dosage: DAILY DOSE 143 MG
     Route: 048
     Dates: start: 20080101
  5. FUROSEMIDE [Concomitant]
     Indication: PROPHYLAXIS
     Dosage: 40 MG (DAILY DOSE), , ORAL
     Route: 048
     Dates: start: 20090825, end: 20090904
  6. ACETYLCYSTEINE [Concomitant]
     Indication: INCREASED BRONCHIAL SECRETION
     Dosage: 600 MG (DAILY DOSE), , ORAL
     Route: 048
     Dates: start: 20040101
  7. CIPROFLOXACIN [Concomitant]
     Indication: PRODUCTIVE COUGH
     Dosage: 500 MG (DAILY DOSE), , ORAL
     Route: 048
     Dates: start: 20090825, end: 20090901
  8. SORAFENIB (RAF KINASE INHIBITOR) [Suspect]
     Indication: NON-SMALL CELL LUNG CANCER
     Route: 048
     Dates: start: 20090902, end: 20090911
  9. DOMPERIDON [Concomitant]
     Indication: VOMITING
     Dates: start: 20090901, end: 20090911
  10. PREDNISOLONE [Concomitant]
     Indication: RESPIRATORY TRACT INFECTION
     Dosage: 5 MG (DAILY DOSE), , ORAL
     Route: 048
     Dates: start: 20040101, end: 20090824
  11. SPIRONOLACTONE [Concomitant]
     Indication: OEDEMA PERIPHERAL
     Dosage: 50 MG (DAILY DOSE), , ORAL
     Route: 048
     Dates: start: 20080101, end: 20080101

REACTIONS (4)
  - DIARRHOEA [None]
  - PNEUMONIA [None]
  - CEREBROVASCULAR ACCIDENT [None]
  - SPEECH DISORDER [None]
